FAERS Safety Report 20730133 (Version 2)
Quarter: 2022Q2

REPORT INFORMATION
  Report Type: Spontaneous
  Country: US (occurrence: US)
  Receive Date: 20220420
  Receipt Date: 20220523
  Transmission Date: 20220720
  Serious: No
  Sender: FDA-Public Use
  Company Number: US-PFIZER INC-2021725636

PATIENT
  Age: 71 Year
  Sex: Female

DRUGS (2)
  1. SOMAVERT [Suspect]
     Active Substance: PEGVISOMANT
     Indication: Acromegaly
     Dosage: 10 MG, ALTERNATE DAY
     Route: 058
     Dates: start: 20110615
  2. SOMAVERT [Suspect]
     Active Substance: PEGVISOMANT
     Dosage: 10 MG, 2X/WEEK
     Route: 058
     Dates: start: 20220501

REACTIONS (3)
  - Off label use [Unknown]
  - Neoplasm progression [Unknown]
  - Bradykinesia [Unknown]

NARRATIVE: CASE EVENT DATE: 20110615
